FAERS Safety Report 5302001-8 (Version None)
Quarter: 2007Q2

REPORT INFORMATION
  Report Type: 
  Country: None (occurrence: None)
  Receive Date: 20070416
  Receipt Date: 20070416
  Transmission Date: 20071010
  Serious: Yes (Life-Threatening, Hospitalization, Disabling)
  Sender: FDA-Public Use
  Company Number: None

PATIENT
  Age: 32 Year
  Sex: Female
  Weight: 90.7194 kg

DRUGS (2)
  1. OXYCONTIN [Suspect]
     Indication: SURGERY
     Dosage: 60 ML
     Dates: start: 20060612, end: 20070404
  2. ZOLOFT [Suspect]

REACTIONS (2)
  - PAIN [None]
  - SUICIDE ATTEMPT [None]
